FAERS Safety Report 8200262-9 (Version None)
Quarter: 2012Q1

REPORT INFORMATION
  Report Type: 
  Country: None (occurrence: None)
  Receive Date: 20120312
  Receipt Date: 20120309
  Transmission Date: 20120608
  Serious: Yes (Other)
  Sender: FDA-Public Use
  Company Number: JP-PFIZER INC-2012063781

PATIENT

DRUGS (4)
  1. CADUET [Suspect]
     Dosage: AMLODIPINE BESILATE 5MG/ ATORVASTATIN CALCIUM 5MG, UNK
     Route: 048
     Dates: start: 20120201
  2. AMLODIPINE BESILATE [Concomitant]
     Dosage: UNK
     Dates: end: 20120201
  3. LIPITOR [Suspect]
     Dosage: UNK
     Route: 048
     Dates: end: 20120201
  4. BONOTEO [Suspect]
     Dosage: UNK
     Route: 048
     Dates: start: 20111101

REACTIONS (4)
  - RHABDOMYOLYSIS [None]
  - CHROMATURIA [None]
  - MUSCLE SPASMS [None]
  - MYALGIA [None]
